FAERS Safety Report 19914709 (Version 1)
Quarter: 2021Q4

REPORT INFORMATION
  Report Type: Spontaneous
  Country: US (occurrence: US)
  Receive Date: 20211004
  Receipt Date: 20211004
  Transmission Date: 20220304
  Serious: No
  Sender: FDA-Public Use
  Company Number: US-OTSUKA-2020_001474

PATIENT
  Sex: Female

DRUGS (5)
  1. ARIPIPRAZOLE [Suspect]
     Active Substance: ARIPIPRAZOLE
     Indication: Bipolar disorder
     Dosage: UNK, ABOUT 5 OR 6 YEARS AGO, TOOK GENERIC FOR PROBABLY 3 MONTHS
     Route: 065
  2. ABILIFY [Concomitant]
     Active Substance: ARIPIPRAZOLE
     Indication: Bipolar disorder
     Dosage: 15 MG, QD, CURRENTLY
     Route: 065
  3. ABILIFY [Concomitant]
     Active Substance: ARIPIPRAZOLE
     Dosage: UNK, CHANGED AS SHE^S GOTTEN OLDER
     Route: 065
  4. ABILIFY [Concomitant]
     Active Substance: ARIPIPRAZOLE
     Dosage: UNK, ABOUT 6 YEARS AGO
     Route: 065
  5. LEXAPRO [Concomitant]
     Active Substance: ESCITALOPRAM OXALATE
     Indication: Product used for unknown indication
     Dosage: 10MG, UNK
     Route: 065

REACTIONS (1)
  - Drug ineffective [Unknown]
